FAERS Safety Report 7545097-5 (Version None)
Quarter: 2011Q2

REPORT INFORMATION
  Report Type: 
  Country: None (occurrence: None)
  Receive Date: 20110610
  Receipt Date: 20110610
  Transmission Date: 20111010
  Serious: Yes (Life-Threatening, Disabling)
  Sender: FDA-Public Use
  Company Number: None

PATIENT
  Age: 66 Year
  Sex: Male
  Weight: 53.978 kg

DRUGS (1)
  1. MELPHALAN HYDROCHLORIDE [Suspect]
     Indication: STEM CELL TRANSPLANT
     Dosage: ONE TIME IV
     Route: 042
     Dates: start: 20110202

REACTIONS (5)
  - CARDIAC FAILURE CONGESTIVE [None]
  - NERVOUS SYSTEM DISORDER [None]
  - CATARACT [None]
  - DEAFNESS [None]
  - SPEECH DISORDER [None]
